FAERS Safety Report 5905875-2 (Version None)
Quarter: 2008Q4

REPORT INFORMATION
  Report Type: 
  Country: None (occurrence: None)
  Receive Date: 20081002
  Receipt Date: 20080926
  Transmission Date: 20090506
  Serious: Yes (Other)
  Sender: FDA-Public Use
  Company Number: US-ASTRAZENECA-2008UW20644

PATIENT
  Sex: Female

DRUGS (2)
  1. NEXIUM [Suspect]
     Route: 048
     Dates: start: 20070101
  2. CRESTOR [Suspect]
     Route: 048
     Dates: start: 20070101

REACTIONS (1)
  - PARATHYROID GLAND OPERATION [None]
